FAERS Safety Report 4392249-1 (Version None)
Quarter: 2004Q3

REPORT INFORMATION
  Report Type: 
  Country: None (occurrence: None)
  Receive Date: 20040702
  Receipt Date: 20040302
  Transmission Date: 20050211
  Serious: Yes (Other)
  Sender: FDA-Public Use
  Company Number: 2004UW03816

PATIENT
  Age: 80 Year
  Sex: Male
  Weight: 67.1324 kg

DRUGS (6)
  1. CRESTOR [Suspect]
     Indication: BLOOD CHOLESTEROL INCREASED
     Dosage: 10 MG PO
     Route: 048
     Dates: start: 20040201
  2. NORVASC [Concomitant]
  3. ASPIRIN [Concomitant]
  4. MELATONIN [Concomitant]
  5. MULTIVITAMIN ^LAPPE^ [Concomitant]
  6. VITAMIN B COMPLEX CAP [Concomitant]

REACTIONS (3)
  - ARTHRALGIA [None]
  - DIZZINESS [None]
  - DRY MOUTH [None]
